FAERS Safety Report 19518142 (Version 2)
Quarter: 2021Q4

REPORT INFORMATION
  Report Type: Spontaneous
  Country: US (occurrence: US)
  Receive Date: 20210712
  Receipt Date: 20211012
  Transmission Date: 20220303
  Serious: Yes (Other)
  Sender: FDA-Public Use
  Company Number: US-BRISTOL-MYERS SQUIBB COMPANY-BMS-2021-066110

PATIENT
  Age: 78 Year
  Sex: Male

DRUGS (1)
  1. OPDIVO [Suspect]
     Active Substance: NIVOLUMAB
     Indication: Malignant melanoma
     Dosage: UNK UNK, Q4WK
     Route: 065
     Dates: end: 20200820

REACTIONS (3)
  - Chronic inflammatory demyelinating polyradiculoneuropathy [Unknown]
  - Ulcerative keratitis [Unknown]
  - Hypothyroidism [Recovering/Resolving]
